FAERS Safety Report 7291640-3 (Version None)
Quarter: 2011Q1

REPORT INFORMATION
  Report Type: 
  Country: None (occurrence: None)
  Receive Date: 20110209
  Receipt Date: 20110209
  Transmission Date: 20110831
  Serious: Yes (Other)
  Sender: FDA-Public Use
  Company Number: None

PATIENT
  Sex: Female
  Weight: 57.6068 kg

DRUGS (5)
  1. ADVIL PM [Concomitant]
  2. MUCINEX DM [Concomitant]
  3. ASPIRIN [Concomitant]
  4. AZITHROMYCIN [Concomitant]
  5. BOTOX [Suspect]
     Indication: BLEPHAROSPASM
     Dosage: 100 UNITS ONCE IM
     Route: 030
     Dates: start: 20110202, end: 20110202

REACTIONS (7)
  - TOOTHACHE [None]
  - BLOOD PRESSURE INCREASED [None]
  - HEART RATE INCREASED [None]
  - NASOPHARYNGITIS [None]
  - UPPER RESPIRATORY TRACT INFECTION [None]
  - DIZZINESS [None]
  - INFLUENZA LIKE ILLNESS [None]
